FAERS Safety Report 6469012-0 (Version None)
Quarter: 2009Q4

REPORT INFORMATION
  Report Type: 
  Country: None (occurrence: None)
  Receive Date: 20091203
  Receipt Date: 20091123
  Transmission Date: 20100525
  Serious: Yes (Other)
  Sender: FDA-Public Use
  Company Number: PHHY2009GR51080

PATIENT
  Age: 47 Year
  Sex: Female

DRUGS (1)
  1. EXTAVIA [Suspect]
     Dosage: ONCE EVERY 15 DAYS

REACTIONS (4)
  - ACTIVITIES OF DAILY LIVING IMPAIRED [None]
  - DISEASE PROGRESSION [None]
  - FEELING ABNORMAL [None]
  - WALKING AID USER [None]
